FAERS Safety Report 8807999 (Version 3)
Quarter: 2015Q2

REPORT INFORMATION
  Report Type: Report from Study
  Country: US (occurrence: US)
  Receive Date: 20120925
  Receipt Date: 20150623
  Transmission Date: 20150821
  Serious: Yes (Death)
  Sender: FDA-Public Use
  Company Number: US-ROCHE-1128562

PATIENT
  Age: 64 Year
  Sex: Female
  Weight: 60 kg

DRUGS (18)
  1. AVASTIN [Suspect]
     Active Substance: BEVACIZUMAB
     Indication: COLON CANCER
     Route: 042
     Dates: start: 20050420
  2. ARANESP [Concomitant]
     Active Substance: DARBEPOETIN ALFA
     Route: 058
  3. IRINOTECAN HYDROCHLORIDE. [Concomitant]
     Active Substance: IRINOTECAN HYDROCHLORIDE
     Route: 042
  4. GRANISETRON [Concomitant]
     Active Substance: GRANISETRON
     Route: 042
  5. FLUOROURACIL. [Concomitant]
     Active Substance: FLUOROURACIL
     Route: 042
  6. LEUCOVORIN CALCIUM. [Concomitant]
     Active Substance: LEUCOVORIN CALCIUM
     Route: 042
  7. OXALIPLATIN. [Concomitant]
     Active Substance: OXALIPLATIN
     Route: 042
  8. ALOXI [Concomitant]
     Active Substance: PALONOSETRON HYDROCHLORIDE
     Route: 042
  9. DEXAMETHASONE SODIUM PHOSPHATE. [Concomitant]
     Active Substance: DEXAMETHASONE SODIUM PHOSPHATE
     Route: 042
  10. ARANESP [Concomitant]
     Active Substance: DARBEPOETIN ALFA
     Route: 058
  11. BENADRYL [Concomitant]
     Active Substance: DIPHENHYDRAMINE HYDROCHLORIDE
     Route: 042
  12. ERBITUX [Concomitant]
     Active Substance: CETUXIMAB
     Route: 042
  13. TYLENOL [Concomitant]
     Active Substance: ACETAMINOPHEN
     Route: 048
  14. FLUOROURACIL. [Concomitant]
     Active Substance: FLUOROURACIL
     Route: 042
  15. AVASTIN [Suspect]
     Active Substance: BEVACIZUMAB
     Route: 042
  16. BENADRYL [Concomitant]
     Active Substance: DIPHENHYDRAMINE HYDROCHLORIDE
     Route: 042
  17. ERBITUX [Concomitant]
     Active Substance: CETUXIMAB
     Route: 042
  18. ATROPINE SULFATE. [Concomitant]
     Active Substance: ATROPINE SULFATE
     Dosage: FOR 1 DAY
     Route: 042

REACTIONS (13)
  - Death [Fatal]
  - Depression [Unknown]
  - Decreased appetite [Unknown]
  - Metastases to peritoneum [Unknown]
  - Nausea [Unknown]
  - Constipation [Unknown]
  - Fatigue [Unknown]
  - Anxiety [Unknown]
  - Vomiting [Unknown]
  - Metastases to liver [Unknown]
  - Pain [Unknown]
  - Diarrhoea [Unknown]
  - Alopecia [Unknown]

NARRATIVE: CASE EVENT DATE: 20061006
